FAERS Safety Report 5206649-0 (Version None)
Quarter: 2007Q1

REPORT INFORMATION
  Report Type: 
  Country: None (occurrence: None)
  Receive Date: 20070111
  Receipt Date: 20070105
  Transmission Date: 20070707
  Serious: Yes (Other)
  Sender: FDA-Public Use
  Company Number: US-GILEAD-2006-0010254

PATIENT
  Age: 35 Year
  Sex: Female

DRUGS (5)
  1. TRUVADA [Suspect]
     Indication: HIV INFECTION
     Route: 048
     Dates: start: 20060131, end: 20060314
  2. KALETRA [Concomitant]
     Indication: HIV INFECTION
     Dosage: 798/198
     Route: 048
     Dates: start: 20060131
  3. EFAVIRENZ [Concomitant]
     Route: 048
     Dates: start: 20050801, end: 20060124
  4. COMBIVIR [Concomitant]
     Dosage: 600/300
     Route: 048
     Dates: start: 20060315
  5. COMBIVIR [Concomitant]
     Dosage: 600/300
     Route: 048
     Dates: start: 20050801, end: 20060124

REACTIONS (3)
  - DRUG EXPOSURE DURING PREGNANCY [None]
  - INTRA-UTERINE DEATH [None]
  - PREGNANCY [None]
